FAERS Safety Report 14457275 (Version 1)
Quarter: 2018Q1

REPORT INFORMATION
  Report Type: Spontaneous
  Country: US (occurrence: US)
  Receive Date: 20180130
  Receipt Date: 20180130
  Transmission Date: 20180509
  Serious: Yes (Hospitalization)
  Sender: FDA-Public Use
  Company Number: US-TEVA-2018-US-851104

PATIENT
  Age: 81 Year
  Sex: Female
  Weight: 70 kg

DRUGS (3)
  1. PROAIR HFA [Suspect]
     Active Substance: ALBUTEROL SULFATE
     Route: 065
     Dates: start: 201703
  2. PROAIR HFA [Suspect]
     Active Substance: ALBUTEROL SULFATE
     Indication: ASTHMA
     Dosage: TWO PUFFS EVERY FOUR HOURS
     Route: 065
     Dates: start: 201701, end: 201703
  3. QVAR [Suspect]
     Active Substance: BECLOMETHASONE DIPROPIONATE
     Indication: ASTHMA
     Dosage: 4 DOSAGE FORMS DAILY; TWO PUFFS TWICE DAILY
     Route: 065
     Dates: start: 201701, end: 201703

REACTIONS (14)
  - Rib fracture [Unknown]
  - Nervousness [Unknown]
  - Headache [Unknown]
  - Diarrhoea [Unknown]
  - Terminal insomnia [Recovered/Resolved]
  - Chest discomfort [Unknown]
  - Cognitive disorder [Unknown]
  - Dysphonia [Not Recovered/Not Resolved]
  - Weight decreased [Unknown]
  - Diarrhoea [Unknown]
  - Palpitations [Not Recovered/Not Resolved]
  - Dyspnoea [Recovering/Resolving]
  - Decreased appetite [Unknown]
  - Fall [Recovered/Resolved]

NARRATIVE: CASE EVENT DATE: 201712
